FAERS Safety Report 7092285-0 (Version None)
Quarter: 2010Q4

REPORT INFORMATION
  Report Type: 
  Country: None (occurrence: None)
  Receive Date: 20101109
  Receipt Date: 20101025
  Transmission Date: 20110411
  Serious: Yes (Other)
  Sender: FDA-Public Use
  Company Number: BR-AMGEN-BRASP2010002074

PATIENT

DRUGS (3)
  1. ENBREL [Suspect]
     Indication: PSORIATIC ARTHROPATHY
     Route: 058
     Dates: start: 20100815, end: 20100919
  2. ACETYLSALICYLIC ACID [Concomitant]
     Dosage: UNSPECIFIED
  3. JANUMET [Concomitant]
     Dosage: UNSPECIFIED

REACTIONS (1)
  - HEPATIC CIRRHOSIS [None]
